FAERS Safety Report 7162716-6 (Version None)
Quarter: 2010Q4

REPORT INFORMATION
  Report Type: 
  Country: None (occurrence: None)
  Receive Date: 20101215
  Receipt Date: 20091210
  Transmission Date: 20110411
  Serious: Yes (Hospitalization, Other)
  Sender: FDA-Public Use
  Company Number: IT-PFIZER INC-2009301732

PATIENT
  Age: 57 Year
  Sex: Female

DRUGS (3)
  1. ZOLOFT [Suspect]
     Indication: DEPRESSION
     Dosage: 50 MG DAILY
     Route: 048
     Dates: start: 20050101
  2. IGROSELES [Concomitant]
  3. COMPENDIUM [Concomitant]

REACTIONS (4)
  - INTENTIONAL OVERDOSE [None]
  - SOPOR [None]
  - SUICIDE ATTEMPT [None]
  - TRANSIENT ISCHAEMIC ATTACK [None]
